FAERS Safety Report 4303780-9 (Version None)
Quarter: 2004Q1

REPORT INFORMATION
  Report Type: 
  Country: None (occurrence: None)
  Receive Date: 20040225
  Receipt Date: 20040216
  Transmission Date: 20041129
  Serious: Yes (Other)
  Sender: FDA-Public Use
  Company Number: PHFR2004GB01052

PATIENT
  Age: 51 Year
  Sex: Female

DRUGS (1)
  1. DIOVAN [Suspect]
     Indication: HYPERTENSION
     Dosage: 80MG/DAY
     Route: 048
     Dates: start: 20031218, end: 20031221

REACTIONS (2)
  - BLISTER [None]
  - RASH ERYTHEMATOUS [None]
